FAERS Safety Report 6764033-2 (Version None)
Quarter: 2010Q2

REPORT INFORMATION
  Report Type: 
  Country: None (occurrence: None)
  Receive Date: 20100610
  Receipt Date: 20091119
  Transmission Date: 20101027
  Serious: Yes (Other)
  Sender: FDA-Public Use
  Company Number: US-ASTRAZENECA-2009UW03570

PATIENT
  Age: 72 Year
  Sex: Female
  Weight: 56.2 kg

DRUGS (6)
  1. FASLODEX [Suspect]
     Indication: BREAST CANCER RECURRENT
     Dosage: EVERY FOUR WEEKS
     Route: 030
     Dates: start: 20090205
  2. ARIMIDEX [Suspect]
     Indication: BREAST CANCER
     Route: 048
     Dates: start: 20071101
  3. ARIMIDEX [Suspect]
     Route: 048
     Dates: start: 20080301, end: 20090101
  4. AVAPRO [Concomitant]
     Indication: HYPERTENSION
  5. ALENDRONATE SODIUM [Concomitant]
     Indication: OSTEOPOROSIS
  6. LIPITOR [Concomitant]
     Indication: BLOOD CHOLESTEROL INCREASED

REACTIONS (5)
  - BLOOD GLUCOSE INCREASED [None]
  - HEPATIC NEOPLASM MALIGNANT [None]
  - INJECTION SITE DISCOMFORT [None]
  - LUNG NEOPLASM MALIGNANT [None]
  - METASTASES TO LYMPH NODES [None]
